FAERS Safety Report 4859226-5 (Version None)
Quarter: 2005Q4

REPORT INFORMATION
  Report Type: 
  Country: None (occurrence: None)
  Receive Date: 20051219
  Receipt Date: 20050928
  Transmission Date: 20060501
  Serious: No
  Sender: FDA-Public Use
  Company Number: US-GLAXOSMITHKLINE-A0576204A

PATIENT
  Age: 46 Year
  Sex: Female

DRUGS (2)
  1. NICODERM CQ [Suspect]
     Dates: start: 20050927, end: 20050928
  2. TAGAMET [Concomitant]

REACTIONS (11)
  - ACCIDENTAL EXPOSURE [None]
  - ASTHENIA [None]
  - FEELING ABNORMAL [None]
  - HEART RATE INCREASED [None]
  - HYPERHIDROSIS [None]
  - HYPOAESTHESIA ORAL [None]
  - MOVEMENT DISORDER [None]
  - MYALGIA [None]
  - NIGHTMARE [None]
  - PHARYNGEAL OEDEMA [None]
  - VOMITING [None]
